FAERS Safety Report 24530371 (Version 1)
Quarter: 2024Q4

REPORT INFORMATION
  Report Type: Spontaneous
  Country: BR (occurrence: BR)
  Receive Date: 20241021
  Receipt Date: 20241021
  Transmission Date: 20250115
  Serious: Yes (Other)
  Sender: TAKEDA
  Company Number: BR-TAKEDA-2024TUS103649

PATIENT
  Sex: Male
  Weight: 83 kg

DRUGS (9)
  1. MESALAMINE [Suspect]
     Active Substance: MESALAMINE
     Indication: Colitis
     Dosage: 800 MILLIGRAM, QD
     Route: 048
  2. DEXILANT [Suspect]
     Active Substance: DEXLANSOPRAZOLE
     Indication: Product used for unknown indication
     Dosage: UNK
     Route: 065
  3. BISOPROLOL FUMARATE [Concomitant]
     Active Substance: BISOPROLOL FUMARATE
     Dosage: 5 MILLIGRAM
  4. INSIT [Concomitant]
     Dosage: 100 MILLIGRAM
  5. ALPRAZOLAM [Concomitant]
     Active Substance: ALPRAZOLAM
     Dosage: 0.5 MILLIGRAM
  6. KETOPROFEN LYSINE [Concomitant]
     Active Substance: KETOPROFEN LYSINE
     Dosage: 160 MILLIGRAM
  7. BETAHISTINE [Concomitant]
     Active Substance: BETAHISTINE
     Dosage: 24 MILLIGRAM
  8. CYANOCOBALAMIN\PYRIDOXINE HYDROCHLORIDE\THIAMINE [Concomitant]
     Active Substance: CYANOCOBALAMIN\PYRIDOXINE HYDROCHLORIDE\THIAMINE
     Dosage: 5000 MICROGRAM
  9. Hemax [Concomitant]
     Indication: Red blood cell count increased
     Dosage: UNK , 1/WEEK

REACTIONS (16)
  - Gastrointestinal carcinoma [Unknown]
  - Osteomyelitis [Unknown]
  - Colitis [Unknown]
  - Device related bacteraemia [Unknown]
  - Product residue present [Unknown]
  - Fistula [Unknown]
  - COVID-19 [Unknown]
  - Varicose vein [Unknown]
  - Abdominal discomfort [Unknown]
  - Cardiac disorder [Unknown]
  - Cardiovascular disorder [Unknown]
  - Prostatic disorder [Unknown]
  - Anxiety [Unknown]
  - Iodine allergy [Unknown]
  - Drug hypersensitivity [Unknown]
  - Diarrhoea [Unknown]
